FAERS Safety Report 8800203 (Version 1)
Quarter: 2012Q4

REPORT INFORMATION
  Report Type: Report from Study
  Country: JP (occurrence: JP)
  Receive Date: 20120921
  Receipt Date: 20120921
  Transmission Date: 20130627
  Serious: Yes (Death)
  Sender: FDA-Public Use
  Company Number: JP-009507513-1209JPN007502

PATIENT
  Age: 86 Year
  Sex: Male
  Weight: 58 kg

DRUGS (11)
  1. AROGLYCEM [Suspect]
     Indication: HYPOGLYCAEMIA
     Dosage: 25 mg, tid
     Route: 048
     Dates: start: 20110330, end: 20110517
  2. AROGLYCEM [Suspect]
     Dosage: 25 mg, bid
     Route: 048
     Dates: start: 20110518, end: 20110629
  3. AROGLYCEM [Suspect]
     Dosage: 50 mg, bid
     Route: 048
     Dates: start: 20110630, end: 20110704
  4. AROGLYCEM [Suspect]
     Dosage: 50 mg, tid
     Route: 048
     Dates: start: 20110705, end: 20110921
  5. THEOLONG [Concomitant]
     Indication: EMPHYSEMA
     Dosage: 200 mg, qd
     Route: 048
  6. CELTECT [Concomitant]
     Indication: ASTHMA
     Dosage: 60 mg, qd
     Route: 048
  7. BAYASPIRIN [Concomitant]
     Indication: CEREBRAL INFARCTION
     Dosage: 100 mg, qd
     Route: 048
  8. ALOSITOL [Concomitant]
     Dosage: 100 mg, qd
     Route: 048
  9. JUVELA N [Concomitant]
     Dosage: 400 mg, qd
     Route: 048
  10. MERISLON [Concomitant]
     Indication: DIZZINESS
     Dosage: 12 mg, qd
     Route: 048
  11. GASTER [Concomitant]
     Indication: GASTRITIS
     Dosage: 40 mg, qd
     Route: 048

REACTIONS (1)
  - Death [Fatal]
